FAERS Safety Report 9234931 (Version 2)
Quarter: 2013Q2

REPORT INFORMATION
  Report Type: Spontaneous
  Country: US (occurrence: US)
  Receive Date: 20130416
  Receipt Date: 20130416
  Transmission Date: 20140414
  Serious: No
  Sender: FDA-Public Use
  Company Number: US-BANPHARM-20120311

PATIENT
  Sex: Male

DRUGS (2)
  1. ALEVE LIQUID GELS 220 MG [Suspect]
     Indication: MUSCULOSKELETAL PAIN
     Dosage: 1 DF, QD,
     Route: 048
     Dates: start: 201210
  2. ALEVE TABLETS [Suspect]
     Indication: MUSCULOSKELETAL PAIN
     Dosage: 2 TABLETS ONCE DAILY
     Dates: start: 201210

REACTIONS (1)
  - Drug ineffective [Unknown]
